FAERS Safety Report 13498399 (Version 1)
Quarter: 2017Q2

REPORT INFORMATION
  Report Type: Spontaneous
  Country: CA (occurrence: CA)
  Receive Date: 20170430
  Receipt Date: 20170430
  Transmission Date: 20170830
  Serious: Yes (Other)
  Sender: FDA-Public Use
  Company Number: CA-BIOGEN-2017BI00395393

PATIENT
  Sex: Female

DRUGS (2)
  1. TYSABRI [Suspect]
     Active Substance: NATALIZUMAB
     Indication: PRODUCT USED FOR UNKNOWN INDICATION
     Route: 065
  2. EXTAVIA [Concomitant]
     Active Substance: INTERFERON BETA-1B
     Indication: RELAPSING-REMITTING MULTIPLE SCLEROSIS
     Route: 058

REACTIONS (2)
  - Multiple sclerosis relapse [Recovered/Resolved]
  - JC virus test positive [Recovered/Resolved]
